FAERS Safety Report 21363452 (Version 1)
Quarter: 2022Q3

REPORT INFORMATION
  Report Type: Other
  Country: CH (occurrence: CH)
  Receive Date: 20220922
  Receipt Date: 20220922
  Transmission Date: 20221027
  Serious: Yes (Life-Threatening, Hospitalization, Other)
  Sender: FDA-Public Use
  Company Number: None

PATIENT

DRUGS (4)
  1. NANDROLONE DECANOATE [Suspect]
     Active Substance: NANDROLONE DECANOATE
     Indication: Muscle building therapy
     Route: 030
  2. METHANDROSTENOLONE [Suspect]
     Active Substance: METHANDROSTENOLONE
     Indication: Muscle building therapy
     Dosage: UNK
     Route: 030
  3. STANOZOLOL [Suspect]
     Active Substance: STANOZOLOL
     Indication: Muscle building therapy
     Dosage: UNK
     Route: 030
  4. TESTOSTERONE [Suspect]
     Active Substance: TESTOSTERONE
     Indication: Muscle building therapy
     Dosage: UNK
     Route: 030

REACTIONS (4)
  - Prescription drug used without a prescription [Unknown]
  - Pituitary apoplexy [Recovered/Resolved]
  - Drug abuse [Recovered/Resolved]
  - IIIrd nerve paralysis [Recovered/Resolved]
